FAERS Safety Report 5834534-X (Version None)
Quarter: 2008Q3

REPORT INFORMATION
  Report Type: 
  Country: None (occurrence: None)
  Receive Date: 20080722
  Receipt Date: 20080109
  Transmission Date: 20090109
  Serious: Yes (Hospitalization)
  Sender: FDA-Public Use
  Company Number: 2008BI000622

PATIENT
  Age: 42 Year
  Sex: Male
  Weight: 115.6672 kg

DRUGS (1)
  1. AVONEX [Suspect]
     Indication: MULTIPLE SCLEROSIS
     Dosage: 30 UG;QW;IM
     Route: 030
     Dates: start: 20060601, end: 20070401

REACTIONS (1)
  - MULTIPLE SCLEROSIS RELAPSE [None]
